FAERS Safety Report 6094878-6 (Version None)
Quarter: 2009Q1

REPORT INFORMATION
  Report Type: 
  Country: None (occurrence: None)
  Receive Date: 20090227
  Receipt Date: 20090217
  Transmission Date: 20090719
  Serious: Yes (Hospitalization)
  Sender: FDA-Public Use
  Company Number: US-JNJFOC-20090204438

PATIENT
  Age: 7 Year
  Sex: Male
  Weight: 20.41 kg

DRUGS (1)
  1. INVEGA [Suspect]
     Indication: BIPOLAR DISORDER
     Route: 048

REACTIONS (6)
  - DYSTONIA [None]
  - FALL [None]
  - LETHARGY [None]
  - MIOSIS [None]
  - NASAL CONGESTION [None]
  - SWOLLEN TONGUE [None]
